FAERS Safety Report 10152557 (Version 1)
Quarter: 2014Q2

REPORT INFORMATION
  Report Type: Spontaneous
  Country: US (occurrence: US)
  Receive Date: 20140505
  Receipt Date: 20140505
  Transmission Date: 20141212
  Serious: Yes (Other)
  Sender: FDA-Public Use
  Company Number: US-ASTRAZENECA-2014SE05737

PATIENT
  Age: 61 Year
  Sex: Female

DRUGS (4)
  1. OMEPRAZOLE [Suspect]
     Indication: GASTRITIS
     Route: 048
  2. RABEPRAZOLE [Suspect]
     Indication: ABDOMINAL DISTENSION
  3. RABEPRAZOLE [Suspect]
     Indication: EARLY SATIETY
  4. RANITIDINE [Concomitant]
     Indication: GASTRITIS

REACTIONS (1)
  - Drug-induced liver injury [Recovered/Resolved]
